FAERS Safety Report 7632145-7 (Version None)
Quarter: 2011Q3

REPORT INFORMATION
  Report Type: 
  Country: None (occurrence: None)
  Receive Date: 20110725
  Receipt Date: 20110725
  Transmission Date: 20111222
  Serious: Yes (Other)
  Sender: FDA-Public Use
  Company Number: None

PATIENT
  Age: 43 Year
  Sex: Male
  Weight: 66.224 kg

DRUGS (2)
  1. SPORT SUNSCREEN CONTINUOUS SPRAY [Suspect]
     Indication: SUNBURN
     Dosage: COVERING SPRAY ON LEGS,ARMS
     Route: 061
     Dates: start: 20110720, end: 20110723
  2. SPORT SUNSCREEN CONTINUOUS SPRAY [Suspect]
     Indication: PROPHYLAXIS
     Dosage: COVERING SPRAY ON LEGS,ARMS
     Route: 061
     Dates: start: 20110720, end: 20110723

REACTIONS (1)
  - DERMATITIS [None]
